FAERS Safety Report 17618757 (Version 1)
Quarter: 2020Q2

REPORT INFORMATION
  Report Type: Spontaneous
  Country: PT (occurrence: PT)
  Receive Date: 20200403
  Receipt Date: 20200403
  Transmission Date: 20200713
  Serious: Yes (Other)
  Sender: FDA-Public Use
  Company Number: PT-SUN PHARMACEUTICAL INDUSTRIES LTD-2020RR-242674

PATIENT
  Age: 55 Year
  Sex: Male

DRUGS (5)
  1. AMPICILLIN [Suspect]
     Active Substance: AMPICILLIN
     Indication: PRODUCT USED FOR UNKNOWN INDICATION
     Dosage: UNK
     Route: 065
  2. CLARITHROMYCIN. [Suspect]
     Active Substance: CLARITHROMYCIN
     Indication: PRODUCT USED FOR UNKNOWN INDICATION
     Dosage: UNK
     Route: 065
  3. CEFTRIAXONE. [Suspect]
     Active Substance: CEFTRIAXONE
     Indication: PRODUCT USED FOR UNKNOWN INDICATION
     Dosage: UNK
     Route: 065
  4. IMIPENEM [Suspect]
     Active Substance: IMIPENEM
     Indication: PRODUCT USED FOR UNKNOWN INDICATION
     Dosage: UNK
     Route: 065
  5. SULFAMETHOXAZOLE/TRIMETHOPRIM [Suspect]
     Active Substance: SULFAMETHOXAZOLE\TRIMETHOPRIM
     Indication: PULMONARY NOCARDIOSIS
     Dosage: UNK
     Route: 065

REACTIONS (16)
  - Pyrexia [Recovering/Resolving]
  - Crepitations [Recovering/Resolving]
  - Respiratory failure [Recovering/Resolving]
  - Rash maculo-papular [Recovering/Resolving]
  - Gastrointestinal disorder [Recovered/Resolved]
  - Cholestasis [Recovering/Resolving]
  - Pulmonary physical examination abnormal [Recovering/Resolving]
  - Malaise [Recovering/Resolving]
  - Coagulopathy [Recovering/Resolving]
  - Ocular hyperaemia [Recovering/Resolving]
  - Hepatocellular injury [Recovering/Resolving]
  - Nasopharyngitis [Recovering/Resolving]
  - Inflammatory marker increased [Recovering/Resolving]
  - Abdominal pain upper [Recovering/Resolving]
  - Chills [Recovering/Resolving]
  - Snoring [Recovering/Resolving]
